FAERS Safety Report 24990245 (Version 1)
Quarter: 2025Q1

REPORT INFORMATION
  Report Type: Spontaneous
  Country: US (occurrence: US)
  Receive Date: 20250220
  Receipt Date: 20250220
  Transmission Date: 20250409
  Serious: Yes (Other)
  Sender: RANBAXY
  Company Number: US-SUN PHARMACEUTICAL INDUSTRIES LTD-2025R1-494582

PATIENT
  Sex: Female

DRUGS (2)
  1. ILUMYA [Suspect]
     Active Substance: TILDRAKIZUMAB-ASMN
     Indication: Psoriasis
     Route: 065
  2. ILUMYA [Suspect]
     Active Substance: TILDRAKIZUMAB-ASMN
     Indication: Psoriatic arthropathy

REACTIONS (7)
  - Systemic lupus erythematosus [Unknown]
  - Pain of skin [Unknown]
  - Alopecia [Unknown]
  - Back pain [Unknown]
  - Sleep deficit [Unknown]
  - Skin irritation [Unknown]
  - Off label use [Unknown]
